FAERS Safety Report 14085810 (Version 4)
Quarter: 2017Q4

REPORT INFORMATION
  Report Type: Spontaneous
  Country: BR (occurrence: BR)
  Receive Date: 20171013
  Receipt Date: 20171103
  Transmission Date: 20180321
  Serious: Yes (Hospitalization, Other)
  Sender: FDA-Public Use
  Company Number: BR-ALEXION PHARMACEUTICALS INC.-A201711281

PATIENT
  Age: 34 Year
  Sex: Male

DRUGS (3)
  1. XARELTO [Concomitant]
     Active Substance: RIVAROXABAN
     Indication: PRODUCT USED FOR UNKNOWN INDICATION
     Route: 065
  2. SOLIRIS [Suspect]
     Active Substance: ECULIZUMAB
     Dosage: 900 MG, Q2W
     Route: 042
     Dates: start: 20141103
  3. SOLIRIS [Suspect]
     Active Substance: ECULIZUMAB
     Indication: PAROXYSMAL NOCTURNAL HAEMOGLOBINURIA
     Dosage: 600 MG, 4 WEEKS
     Route: 042
     Dates: start: 20141006, end: 20141027

REACTIONS (9)
  - Feeling abnormal [Unknown]
  - Abdominal pain [Recovered/Resolved]
  - Feeding disorder [Recovered/Resolved]
  - Blood urine present [Unknown]
  - Blood lactate dehydrogenase increased [Recovered/Resolved]
  - Anxiety [Unknown]
  - Chromaturia [Not Recovered/Not Resolved]
  - Asthenia [Recovered/Resolved]
  - Haemolysis [Recovered/Resolved]

NARRATIVE: CASE EVENT DATE: 20170929
